FAERS Safety Report 16035699 (Version 4)
Quarter: 2025Q3

REPORT INFORMATION
  Report Type: Spontaneous
  Country: US (occurrence: US)
  Receive Date: 20190305
  Receipt Date: 20250707
  Transmission Date: 20251020
  Serious: Yes (Other)
  Sender: PFIZER
  Company Number: US-PFIZER INC-2019094754

PATIENT
  Age: 66 Year
  Sex: Female

DRUGS (4)
  1. SULFAMETHOXAZOLE\TRIMETHOPRIM [Interacting]
     Active Substance: SULFAMETHOXAZOLE\TRIMETHOPRIM
     Indication: Pyelonephritis
     Dosage: 1 DF, 2X/DAY (DOUBLE STRENGTH AT A DOSE OF 1 TABLET (160/800))
  2. SULFAMETHOXAZOLE\TRIMETHOPRIM [Interacting]
     Active Substance: SULFAMETHOXAZOLE\TRIMETHOPRIM
     Indication: Antibiotic prophylaxis
  3. WARFARIN [Interacting]
     Active Substance: WARFARIN
     Indication: Embolic stroke
     Dosage: 5 MG, DAILY
     Route: 048
  4. WARFARIN [Interacting]
     Active Substance: WARFARIN
     Indication: Cerebrovascular accident prophylaxis
     Dosage: 4 MG, DAILY, (DECREASED THE DOSE BY 20%)
     Route: 048

REACTIONS (4)
  - Rectal haemorrhage [Recovered/Resolved]
  - Epistaxis [Recovered/Resolved]
  - Drug interaction [Recovered/Resolved]
  - International normalised ratio increased [Recovered/Resolved]
